FAERS Safety Report 8950668 (Version 1)
Quarter: 2012Q4

REPORT INFORMATION
  Report Type: Report from Study
  Country: CA (occurrence: CA)
  Receive Date: 20121207
  Receipt Date: 20121207
  Transmission Date: 20130627
  Serious: Yes (Other)
  Sender: FDA-Public Use
  Company Number: CA-JNJFOC-20121114091

PATIENT
  Age: 37 Year
  Sex: Male
  Weight: 115.1 kg

DRUGS (5)
  1. REMICADE [Suspect]
     Indication: ANKYLOSING SPONDYLITIS
     Dosage: 39th infusion
     Route: 042
  2. REMICADE [Suspect]
     Indication: ANKYLOSING SPONDYLITIS
     Route: 042
     Dates: start: 20070206
  3. NAPROXEN [Concomitant]
     Route: 065
  4. PREVACID [Concomitant]
     Route: 065
  5. ANTI-HYPERTENSIVE NOS [Concomitant]
     Indication: BLOOD PRESSURE
     Route: 065

REACTIONS (1)
  - Nephrolithiasis [Unknown]
